FAERS Safety Report 17458138 (Version 1)
Quarter: 2020Q1

REPORT INFORMATION
  Report Type: Spontaneous
  Country: US (occurrence: US)
  Receive Date: 20200225
  Receipt Date: 20200225
  Transmission Date: 20200409
  Serious: No
  Sender: FDA-Public Use
  Company Number: US-009507513-2002USA008913

PATIENT
  Age: 12 Year
  Sex: Female

DRUGS (2)
  1. NOXAFIL [Suspect]
     Active Substance: POSACONAZOLE
     Dosage: 12.7 MILLIGRAM/KILOGRAM (400 MG), QD
     Route: 048
  2. NOXAFIL [Suspect]
     Active Substance: POSACONAZOLE
     Indication: CEREBRAL FUNGAL INFECTION
     Dosage: 9.7 MILLIGRAM/KILOGRAM (300 MG), QD
     Route: 048

REACTIONS (3)
  - Proteinuria [Recovered/Resolved]
  - Product use issue [Unknown]
  - Pseudohypoaldosteronism [Recovered/Resolved]
